FAERS Safety Report 17259061 (Version 4)
Quarter: 2020Q2

REPORT INFORMATION
  Report Type: Spontaneous
  Country: US (occurrence: US)
  Receive Date: 20200110
  Receipt Date: 20200408
  Transmission Date: 20200713
  Serious: No
  Sender: FDA-Public Use
  Company Number: US-PFIZER INC-2019207626

PATIENT
  Age: 80 Year
  Sex: Female
  Weight: 60.9 kg

DRUGS (1)
  1. IBRANCE [Suspect]
     Active Substance: PALBOCICLIB
     Indication: BREAST CANCER FEMALE
     Dosage: 100 MG, CYCLIC (DAILY FOR 21 DAYS)/ (TAKE WITH FOOD SWALLOW WHOLE)
     Route: 048
     Dates: start: 20191005

REACTIONS (2)
  - Blood count abnormal [Unknown]
  - Malaise [Unknown]
